FAERS Safety Report 5350693-X (Version None)
Quarter: 2007Q2

REPORT INFORMATION
  Report Type: 
  Country: None (occurrence: None)
  Receive Date: 20070608
  Receipt Date: 20070530
  Transmission Date: 20071010
  Serious: Yes (Other)
  Sender: FDA-Public Use
  Company Number: FR-ELI_LILLY_AND_COMPANY-FR200706001704

PATIENT
  Age: 64 Year
  Sex: Female

DRUGS (2)
  1. EVISTA [Suspect]
     Route: 048
     Dates: start: 20030601
  2. CLIMARA [Concomitant]
     Dates: start: 20000101

REACTIONS (1)
  - BREAST CANCER [None]
